FAERS Safety Report 7194470-6 (Version None)
Quarter: 2010Q4

REPORT INFORMATION
  Report Type: 
  Country: None (occurrence: None)
  Receive Date: 20101223
  Receipt Date: 20101213
  Transmission Date: 20110411
  Serious: Yes (Hospitalization, Other)
  Sender: FDA-Public Use
  Company Number: US-ELI_LILLY_AND_COMPANY-US201012003741

PATIENT
  Sex: Female

DRUGS (16)
  1. BYETTA [Suspect]
     Indication: TYPE 2 DIABETES MELLITUS
     Dosage: 5 UG, 2/D
     Route: 058
  2. BYETTA [Suspect]
     Dosage: 10 UG, 2/D
     Route: 058
  3. METFORMIN [Concomitant]
     Indication: TYPE 2 DIABETES MELLITUS
     Dosage: 1000 MG, 2/D
     Route: 048
  4. GLIPIZIDE [Concomitant]
     Dosage: 10 MG, 2/D
     Route: 048
     Dates: end: 20101115
  5. GLIPIZIDE [Concomitant]
     Dosage: 5 MG, 2/D
     Route: 048
     Dates: start: 20101115
  6. LANTUS [Concomitant]
     Indication: TYPE 2 DIABETES MELLITUS
  7. AVANDIA [Concomitant]
     Indication: TYPE 2 DIABETES MELLITUS
     Dosage: 2 MG, UNK
     Route: 048
     Dates: end: 20101101
  8. SOTALOL HCL [Concomitant]
     Dosage: 80 MG, 2/D
     Route: 048
     Dates: start: 20101101, end: 20101201
  9. VERAPAMIL [Concomitant]
     Indication: ATRIAL FIBRILLATION
     Dosage: 180 MG, DAILY (1/D)
     Route: 048
  10. DICYCLOMINE [Concomitant]
     Dosage: 20 MG, 4/D
     Route: 048
  11. LEVOTHYROXINE [Concomitant]
     Indication: THYROID HORMONE REPLACEMENT THERAPY
     Dosage: 100 UG, DAILY (1/D)
     Route: 048
  12. COUMADIN [Concomitant]
     Indication: CARDIAC DISORDER
     Dosage: 7.5 MG, DAILY (1/D)
     Route: 048
  13. CRESTOR [Concomitant]
     Indication: CARDIAC DISORDER
     Dosage: 10 MG, DAILY (1/D)
     Route: 048
  14. FUROSEMIDE [Concomitant]
     Dosage: 40 MG, DAILY (1/D)
     Route: 048
  15. KLOR-CON [Concomitant]
     Dosage: 10 MEQ, 2/D
     Route: 048
  16. TYLENOL                                 /SCH/ [Concomitant]
     Indication: ARTHRITIS
     Dosage: UNK, AS NEEDED
     Route: 048

REACTIONS (6)
  - ATRIAL FIBRILLATION [None]
  - DRUG DOSE OMISSION [None]
  - FEELING ABNORMAL [None]
  - HEART RATE DECREASED [None]
  - OFF LABEL USE [None]
  - PRESYNCOPE [None]
